FAERS Safety Report 20733517 (Version 3)
Quarter: 2025Q2

REPORT INFORMATION
  Report Type: Spontaneous
  Country: US (occurrence: US)
  Receive Date: 20220421
  Receipt Date: 20250528
  Transmission Date: 20250716
  Serious: No
  Sender: CIPLA
  Company Number: US-CIPLA LTD.-2022US02209

PATIENT

DRUGS (2)
  1. ALBUTEROL [Suspect]
     Active Substance: ALBUTEROL
     Indication: Asthma
     Route: 048
  2. ALBUTEROL [Suspect]
     Active Substance: ALBUTEROL
     Route: 048
     Dates: start: 202203, end: 2022

REACTIONS (4)
  - Dyspnoea exertional [Recovered/Resolved]
  - Drug ineffective [Recovered/Resolved]
  - Device delivery system issue [Unknown]
  - Extra dose administered [Unknown]

NARRATIVE: CASE EVENT DATE: 20220301
